FAERS Safety Report 6151583-5 (Version None)
Quarter: 2009Q2

REPORT INFORMATION
  Report Type: 
  Country: None (occurrence: None)
  Receive Date: 20090410
  Receipt Date: 20090330
  Transmission Date: 20091009
  Serious: Yes (Life-Threatening)
  Sender: FDA-Public Use
  Company Number: JP-ABBOTT-09P-087-0561995-00

PATIENT
  Age: 75 Year
  Sex: Male

DRUGS (9)
  1. LEUPLIN SR FOR INJECTION 11.25 MG [Suspect]
     Indication: PROSTATE CANCER STAGE II
     Route: 058
     Dates: start: 20061107, end: 20080404
  2. LEUPLIN SR FOR INJECTION 11.25 MG [Suspect]
     Route: 058
     Dates: start: 20081111
  3. LEUPLIN SR FOR INJECTION 11.25 MG [Suspect]
     Dates: start: 20060815, end: 20061010
  4. FURTULON [Concomitant]
     Indication: COLON CANCER
     Route: 048
  5. TAGAMET [Concomitant]
     Indication: GASTRITIS
     Route: 048
  6. MUCOSTA [Concomitant]
     Indication: GASTRITIS
     Route: 048
  7. URSO 250 [Concomitant]
     Indication: HEPATIC FUNCTION ABNORMAL
     Route: 048
     Dates: start: 20070213, end: 20070510
  8. BEZATOL SR [Concomitant]
     Indication: HYPERLIPIDAEMIA
     Route: 048
     Dates: start: 20070510
  9. CHLORMADINONE ACETATE TAB [Concomitant]
     Indication: PROSTATE CANCER STAGE II
     Route: 048
     Dates: start: 20080725

REACTIONS (1)
  - METASTASES TO LUNG [None]
